FAERS Safety Report 5431761-0 (Version None)
Quarter: 2007Q3

REPORT INFORMATION
  Report Type: 
  Country: None (occurrence: None)
  Receive Date: 20070830
  Receipt Date: 20070820
  Transmission Date: 20080115
  Serious: Yes (Hospitalization)
  Sender: FDA-Public Use
  Company Number: US-SHR-US-2007-031100

PATIENT
  Age: 39 Year
  Sex: Female

DRUGS (4)
  1. BETASERON [Suspect]
     Indication: MULTIPLE SCLEROSIS
     Dosage: UNK, UNK
     Route: 058
     Dates: start: 20010101, end: 20010327
  2. BETASERON [Suspect]
     Dosage: 8 MIU, EVERY 2D
     Route: 058
     Dates: start: 20060707, end: 20070101
  3. BETASERON [Suspect]
     Dosage: 8 MIU, 2X/WEEK
     Route: 058
     Dates: start: 20070101, end: 20070101
  4. BETASERON [Suspect]
     Dosage: 8 MIU, EVERY 2D
     Route: 058
     Dates: start: 20070101

REACTIONS (5)
  - ASTHENIA [None]
  - FEELING OF BODY TEMPERATURE CHANGE [None]
  - MULTIPLE SCLEROSIS [None]
  - THYROID DISORDER [None]
  - WEIGHT DECREASED [None]
